FAERS Safety Report 21662549 (Version 1)
Quarter: 2022Q4

REPORT INFORMATION
  Report Type: Report from Study
  Country: US (occurrence: US)
  Receive Date: 20221130
  Receipt Date: 20221130
  Transmission Date: 20230113
  Serious: No
  Sender: FDA-Public Use
  Company Number: US-ABBVIE-4172056

PATIENT
  Sex: Male

DRUGS (4)
  1. HUMIRA [Suspect]
     Active Substance: ADALIMUMAB
     Indication: Product used for unknown indication
     Route: 058
  2. Moderna [Concomitant]
     Indication: COVID-19 immunisation
     Dosage: 1ST DOSE
     Route: 030
     Dates: start: 20210101, end: 20210101
  3. Moderna [Concomitant]
     Indication: COVID-19 immunisation
     Dosage: 2ND DOSE
     Route: 030
     Dates: start: 20210201, end: 20210201
  4. Moderna [Concomitant]
     Indication: COVID-19 immunisation
     Dosage: 3ED CASE COVID BOOSTER
     Route: 030
     Dates: start: 20220301, end: 20220301

REACTIONS (2)
  - Arthropod sting [Not Recovered/Not Resolved]
  - Drug ineffective [Not Recovered/Not Resolved]
